FAERS Safety Report 4383349-0 (Version None)
Quarter: 2004Q2

REPORT INFORMATION
  Report Type: 
  Country: None (occurrence: None)
  Receive Date: 20040618
  Receipt Date: 20040607
  Transmission Date: 20050107
  Serious: Yes (Hospitalization, Other)
  Sender: FDA-Public Use
  Company Number: 2004215442GB

PATIENT
  Age: 59 Year

DRUGS (7)
  1. CAMPTOSAR [Suspect]
     Indication: COLON CANCER METASTATIC
     Dosage: 660 MG, CYCLIC, IV
     Route: 042
     Dates: start: 20040408, end: 20040408
  2. SULPHAZALASINE [Concomitant]
  3. FLUCONAZOLE [Concomitant]
  4. METHOTRIMEPRAZINE [Concomitant]
  5. ONDANSETRON HCL [Concomitant]
  6. CETIRIZINE HCL [Concomitant]
  7. AMITRIPTYLINE HCL [Concomitant]

REACTIONS (5)
  - AUTOIMMUNE THROMBOCYTOPENIA [None]
  - DIARRHOEA [None]
  - HYPERSENSITIVITY [None]
  - MALAISE [None]
  - SKIN NODULE [None]
